FAERS Safety Report 7465200-5 (Version None)
Quarter: 2011Q2

REPORT INFORMATION
  Report Type: 
  Country: None (occurrence: None)
  Receive Date: 20110509
  Receipt Date: 20110425
  Transmission Date: 20111010
  Serious: Yes (Hospitalization)
  Sender: FDA-Public Use
  Company Number: PHHY2011DE35807

PATIENT
  Age: 76 Year
  Sex: Male

DRUGS (2)
  1. HORMONES [Concomitant]
     Dosage: UNK
     Dates: start: 20050201
  2. ZOMETA [Suspect]
     Indication: METASTASES TO BONE
     Dosage: 4 MG, QMO
     Dates: start: 20050201

REACTIONS (7)
  - OSTEONECROSIS OF JAW [None]
  - ABSCESS JAW [None]
  - EXPOSED BONE IN JAW [None]
  - PURULENCE [None]
  - DENTAL FISTULA [None]
  - PAIN [None]
  - SWELLING [None]
